FAERS Safety Report 7767949-3 (Version None)
Quarter: 2011Q3

REPORT INFORMATION
  Report Type: 
  Country: None (occurrence: None)
  Receive Date: 20110922
  Receipt Date: 20100803
  Transmission Date: 20111222
  Serious: Yes (Hospitalization, Other)
  Sender: FDA-Public Use
  Company Number: US-ASTRAZENECA-2007UW25555

PATIENT
  Age: 511 Month
  Sex: Female
  Weight: 81.6 kg

DRUGS (24)
  1. SEROQUEL [Suspect]
     Dosage: 200 - 800 MG DAILY
     Route: 048
     Dates: start: 20010917
  2. RISPERDAL [Concomitant]
     Indication: SCHIZOPHRENIA
     Dosage: 3 TO 4 MG
     Dates: start: 20011011, end: 20020110
  3. LIBRIUM [Concomitant]
     Indication: ALCOHOL WITHDRAWAL SYNDROME
     Dates: start: 20030317
  4. AMARYL [Concomitant]
     Dates: start: 20030718
  5. SEROQUEL [Suspect]
     Indication: INSOMNIA
     Dosage: 200MG-800MG
     Route: 048
     Dates: start: 20010301
  6. AVANDIA [Concomitant]
     Dosage: 4 - 8 MG DAILY
     Route: 048
     Dates: start: 20050731
  7. HYDROCHLOROTHIAZIDE [Concomitant]
     Route: 048
     Dates: start: 20050731
  8. RISPERDAL [Concomitant]
     Indication: DEPRESSION
     Dosage: 3 TO 4 MG
     Dates: start: 20011011, end: 20020110
  9. SEROQUEL [Suspect]
     Dosage: 200 - 800 MG DAILY
     Route: 048
     Dates: start: 20010917
  10. CELEXA [Concomitant]
     Dosage: 20 - 40 MG
     Route: 048
     Dates: start: 20010917
  11. COGENTIN [Concomitant]
     Route: 048
     Dates: start: 20020110
  12. PEPCID [Concomitant]
     Dates: start: 20050731
  13. RISPERDAL [Concomitant]
     Dates: start: 20020110
  14. SEROQUEL [Suspect]
     Dosage: 200 - 800 MG DAILY
     Route: 048
     Dates: start: 20010917
  15. SEROQUEL [Suspect]
     Indication: SCHIZOPHRENIA
     Dosage: 200MG-800MG
     Route: 048
     Dates: start: 20010301
  16. SEROQUEL [Suspect]
     Indication: BIPOLAR DISORDER
     Dosage: 200MG-800MG
     Route: 048
     Dates: start: 20010301
  17. SEROQUEL [Suspect]
     Dosage: 200 - 800 MG DAILY
     Route: 048
     Dates: start: 20010917
  18. PRINIVIL [Concomitant]
     Route: 048
     Dates: start: 20050407
  19. SEROQUEL [Suspect]
     Indication: ANXIETY
     Dosage: 200MG-800MG
     Route: 048
     Dates: start: 20010301
  20. SEROQUEL [Suspect]
     Indication: DEPRESSION
     Dosage: 200MG-800MG
     Route: 048
     Dates: start: 20010301
  21. SEROQUEL [Suspect]
     Dosage: 200 - 800 MG DAILY
     Route: 048
     Dates: start: 20010917
  22. RISPERDAL [Concomitant]
     Indication: BIPOLAR DISORDER
     Dosage: 3 TO 4 MG
     Dates: start: 20011011, end: 20020110
  23. RISPERDAL [Concomitant]
     Dates: start: 20020110
  24. RISPERDAL [Concomitant]
     Dates: start: 20020110

REACTIONS (9)
  - DIABETES MELLITUS [None]
  - DIABETIC KETOACIDOSIS [None]
  - PANCREATITIS [None]
  - DIABETIC COMPLICATION [None]
  - TYPE 2 DIABETES MELLITUS [None]
  - HYPERGLYCAEMIA [None]
  - DIABETES MELLITUS INADEQUATE CONTROL [None]
  - TYPE 1 DIABETES MELLITUS [None]
  - DIABETIC COMA [None]
